FAERS Safety Report 6139785-5 (Version None)
Quarter: 2009Q2

REPORT INFORMATION
  Report Type: 
  Country: None (occurrence: None)
  Receive Date: 20090401
  Receipt Date: 20090325
  Transmission Date: 20091009
  Serious: Yes (Other)
  Sender: FDA-Public Use
  Company Number: B0540023A

PATIENT
  Sex: Male

DRUGS (10)
  1. SERETIDE [Suspect]
     Indication: ASTHMA
     Dosage: 1PUFF TWICE PER DAY
     Route: 055
     Dates: start: 20080101
  2. ATORVASTATIN CALCIUM [Suspect]
     Indication: BLOOD CHOLESTEROL INCREASED
     Dosage: 40MG PER DAY
     Route: 048
  3. AZATHIOPRINE [Suspect]
     Dosage: 50MG PER DAY
     Route: 048
  4. BISOPROLOL [Suspect]
     Dosage: 1.25MG PER DAY
     Route: 048
  5. DIGOXIN [Suspect]
     Dosage: 125MCG PER DAY
     Route: 048
  6. EZETIMIBE [Suspect]
     Indication: BLOOD CHOLESTEROL INCREASED
     Dosage: 10MG PER DAY
     Route: 048
  7. FRUSEMIDE [Suspect]
     Dosage: 40MG PER DAY
  8. LANSOPRAZOLE [Suspect]
     Dosage: 15MG PER DAY
     Route: 048
  9. PERINDOPRIL ERBUMINE [Suspect]
     Indication: BLOOD PRESSURE
     Dosage: 8MG PER DAY
     Route: 048
  10. SPIRONOLACTONE [Suspect]
     Dosage: 25MG PER DAY
     Route: 048

REACTIONS (4)
  - ASTHMA [None]
  - DYSPNOEA [None]
  - MUSCLE SPASMS [None]
  - NOCTURNAL DYSPNOEA [None]
